FAERS Safety Report 21675979 (Version 1)
Quarter: 2022Q4

REPORT INFORMATION
  Report Type: Spontaneous
  Country: US (occurrence: US)
  Receive Date: 20221202
  Receipt Date: 20221202
  Transmission Date: 20230113
  Serious: Yes (Other)
  Sender: FDA-Public Use
  Company Number: US-NOVOPROD-920929

PATIENT
  Age: 84 Year
  Sex: Female

DRUGS (1)
  1. NOVOLIN R [Suspect]
     Active Substance: INSULIN HUMAN
     Indication: Product used for unknown indication
     Dosage: 14 IU INSTEAD OF 15 IU
     Route: 058

REACTIONS (5)
  - Hypoglycaemia [Recovered/Resolved]
  - Drug ineffective [Unknown]
  - Product storage error [Unknown]
  - Somnolence [Recovered/Resolved]
  - Hyperhidrosis [Not Recovered/Not Resolved]

NARRATIVE: CASE EVENT DATE: 20220401
